FAERS Safety Report 6195749-7 (Version None)
Quarter: 2009Q2

REPORT INFORMATION
  Report Type: 
  Country: None (occurrence: None)
  Receive Date: 20090520
  Receipt Date: 20070911
  Transmission Date: 20091009
  Serious: Yes (Hospitalization, Other)
  Sender: FDA-Public Use
  Company Number: US-ASTRAZENECA-2006UW07712

PATIENT
  Age: 38 Year
  Sex: Female
  Weight: 80.7 kg

DRUGS (47)
  1. SEROQUEL [Suspect]
     Indication: BIPOLAR DISORDER
     Route: 048
     Dates: start: 20030701, end: 20070901
  2. SEROQUEL [Suspect]
     Indication: DEPRESSION
     Route: 048
     Dates: start: 20030701, end: 20070901
  3. SEROQUEL [Suspect]
     Indication: POST-TRAUMATIC STRESS DISORDER
     Route: 048
     Dates: start: 20030701, end: 20070901
  4. SEROQUEL [Suspect]
     Dosage: 300MG - 800MG
     Route: 048
     Dates: start: 20040205
  5. SEROQUEL [Suspect]
     Dosage: 300MG - 800MG
     Route: 048
     Dates: start: 20040205
  6. SEROQUEL [Suspect]
     Dosage: 300MG - 800MG
     Route: 048
     Dates: start: 20040205
  7. ABILIFY [Concomitant]
     Dates: start: 20060101
  8. TRAZODONE HCL [Concomitant]
  9. GEODON [Concomitant]
     Dates: start: 20060101
  10. DILAUDID [Concomitant]
     Route: 048
  11. EFFEXOR [Concomitant]
     Route: 048
  12. TRAMADOL HCL [Concomitant]
     Route: 048
  13. MAXALT [Concomitant]
     Route: 048
  14. DULCOLAX [Concomitant]
     Dosage: 2 TABS
     Route: 048
  15. PROMETHAZINE [Concomitant]
     Route: 048
  16. KLONAZAPAM [Concomitant]
     Route: 048
  17. DEPAKOTE [Concomitant]
     Route: 048
  18. PRILOSEC [Concomitant]
     Route: 048
  19. CRESTOR [Concomitant]
     Route: 048
  20. ZOLOFT [Concomitant]
  21. RANITIDINE [Concomitant]
  22. CYCLOBENZAPRINE [Concomitant]
  23. DIPHENHYDRAMINE HCL [Concomitant]
  24. PREDNISONE [Concomitant]
  25. DIFLUCAN [Concomitant]
  26. CIPRO [Concomitant]
  27. ADVAIR HFA [Concomitant]
     Dosage: 250/50 DISKUS
  28. NOVOLIN R [Concomitant]
     Dosage: 100 UNITS/ML
     Route: 065
  29. LODINE [Concomitant]
     Route: 065
  30. DIOVAN [Concomitant]
     Route: 048
  31. BACLOFEN [Concomitant]
     Dosage: 10-20MG
     Route: 065
  32. BEXTRA [Concomitant]
     Route: 065
  33. FLEXERIL [Concomitant]
     Route: 065
  34. LANSOPRAZOLE [Concomitant]
     Route: 065
  35. ELAVIL [Concomitant]
     Route: 065
  36. BUSPAR [Concomitant]
     Route: 065
  37. PROZAC [Concomitant]
     Route: 065
  38. ROSIGLITAZONE [Concomitant]
     Route: 065
  39. GLIPIZIDE [Concomitant]
     Route: 065
  40. FLUTICASONE [Concomitant]
     Route: 065
  41. SERTRALINE HCL [Concomitant]
     Route: 048
  42. DIVALPROEX SODIUM [Concomitant]
     Route: 048
  43. LITHIUM [Concomitant]
     Route: 065
  44. CIPROFLOXACIN HCL [Concomitant]
     Route: 048
  45. LIPITOR [Concomitant]
     Dosage: 10-40 MG
     Route: 048
  46. OMEPRAZOLE [Concomitant]
     Route: 065
  47. IMITREX [Concomitant]
     Route: 065

REACTIONS (31)
  - ABDOMINAL PAIN [None]
  - ASTHMA [None]
  - BACK PAIN [None]
  - BLOOD CHOLESTEROL INCREASED [None]
  - BONE PAIN [None]
  - BRONCHITIS [None]
  - CHEST PAIN [None]
  - CHOLELITHIASIS [None]
  - DIABETES MELLITUS [None]
  - DIARRHOEA [None]
  - DYSPEPSIA [None]
  - DYSTHYMIC DISORDER [None]
  - GALACTORRHOEA [None]
  - GALLBLADDER OPERATION [None]
  - GASTRITIS [None]
  - HEADACHE [None]
  - HEPATITIS [None]
  - HOSPITALISATION [None]
  - HYPERTENSION [None]
  - INTERVERTEBRAL DISC DISORDER [None]
  - MULTIPLE SCLEROSIS [None]
  - MUSCULAR WEAKNESS [None]
  - MYALGIA [None]
  - NAUSEA [None]
  - NECK PAIN [None]
  - PARAESTHESIA [None]
  - RADICULITIS LUMBOSACRAL [None]
  - RHEUMATOID ARTHRITIS [None]
  - VAGINAL INFECTION [None]
  - VISION BLURRED [None]
  - VOMITING [None]
